FAERS Safety Report 11335252 (Version 1)
Quarter: 2015Q3

REPORT INFORMATION
  Report Type: Spontaneous
  Country: US (occurrence: None)
  Receive Date: 20150731
  Receipt Date: 20150731
  Transmission Date: 20151125
  Serious: Yes (Other)
  Sender: FDA-Public Use
  Company Number: None

PATIENT
  Age: 60 Year
  Sex: Female
  Weight: 77.11 kg

DRUGS (1)
  1. DULOXETINE HYDROCHLORIDE 30 MG [Suspect]
     Active Substance: DULOXETINE HYDROCHLORIDE
     Indication: DEPRESSION
     Route: 048
     Dates: start: 20150526, end: 20150730

REACTIONS (13)
  - Diarrhoea [None]
  - Rash papular [None]
  - Nail picking [None]
  - Presyncope [None]
  - Urinary hesitation [None]
  - Nausea [None]
  - Dizziness [None]
  - Abnormal dreams [None]
  - Pruritus [None]
  - Headache [None]
  - Fatigue [None]
  - Chills [None]
  - Rash pruritic [None]

NARRATIVE: CASE EVENT DATE: 20150730
